FAERS Safety Report 11832583 (Version 3)
Quarter: 2016Q1

REPORT INFORMATION
  Report Type: Spontaneous
  Country: CO (occurrence: CO)
  Receive Date: 20151214
  Receipt Date: 20160212
  Transmission Date: 20160525
  Serious: Yes (Other)
  Sender: FDA-Public Use
  Company Number: CO-PFIZER INC-2015421236

PATIENT
  Age: 7 Year
  Sex: Male

DRUGS (3)
  1. GENOTROPIN [Suspect]
     Active Substance: SOMATROPIN
     Indication: BODY HEIGHT BELOW NORMAL
     Dosage: 0.8 MG, DAILY
     Route: 058
     Dates: start: 2009
  2. GENOTROPIN [Suspect]
     Active Substance: SOMATROPIN
     Indication: UNDERWEIGHT
  3. LEVOTIROXINA [Concomitant]
     Active Substance: LEVOTHYROXINE SODIUM
     Dosage: UNK
     Dates: start: 200706

REACTIONS (8)
  - Drug ineffective for unapproved indication [Unknown]
  - Visual impairment [Recovered/Resolved]
  - Dysbacteriosis [Recovered/Resolved]
  - Headache [Recovered/Resolved]
  - Chronic gastritis [Recovered/Resolved]
  - Gastrointestinal infection [Recovered/Resolved]
  - Cryptorchism [Recovered/Resolved]
  - Vomiting [Recovered/Resolved]

NARRATIVE: CASE EVENT DATE: 2013
